FAERS Safety Report 6046123-5 (Version None)
Quarter: 2009Q1

REPORT INFORMATION
  Report Type: 
  Country: None (occurrence: None)
  Receive Date: 20090121
  Receipt Date: 20090121
  Transmission Date: 20090719
  Serious: Yes (Hospitalization)
  Sender: FDA-Public Use
  Company Number: None

PATIENT
  Age: 55 Year
  Sex: Male

DRUGS (1)
  1. LAMICTAL [Suspect]
     Dosage: 150 MG HS ORAL (PO)
     Route: 048
     Dates: start: 20081210, end: 20090104

REACTIONS (7)
  - BODY TEMPERATURE INCREASED [None]
  - CELLULITIS [None]
  - PAIN OF SKIN [None]
  - PRURITUS [None]
  - RASH [None]
  - SKIN EXFOLIATION [None]
  - WOUND SECRETION [None]
